FAERS Safety Report 23871099 (Version 1)
Quarter: 2024Q2

REPORT INFORMATION
  Report Type: Spontaneous
  Country: US (occurrence: US)
  Receive Date: 20240518
  Receipt Date: 20240518
  Transmission Date: 20240716
  Serious: No
  Sender: FDA-Public Use
  Company Number: US-TARSUS PHARMACEUTICALS-TSP-US-2024-000112

PATIENT
  Age: 62 Year
  Sex: Male

DRUGS (2)
  1. XDEMVY [Suspect]
     Active Substance: LOTILANER
     Indication: Blepharitis
     Dosage: 1 DROP, BID (IN BOTH EYES FOR 5 AND HALF WEEKS)
     Route: 047
     Dates: start: 20240211, end: 20240319
  2. MIEBO [Concomitant]
     Active Substance: PERFLUOROHEXYLOCTANE
     Indication: Product used for unknown indication
     Dosage: UNK
     Route: 065

REACTIONS (4)
  - Photophobia [Unknown]
  - Corneal disorder [Unknown]
  - Ocular discomfort [Unknown]
  - Glare [Unknown]

NARRATIVE: CASE EVENT DATE: 20240201
